FAERS Safety Report 9079504 (Version 1)
Quarter: 2013Q1

REPORT INFORMATION
  Report Type: Report from Study
  Country: US (occurrence: US)
  Receive Date: 20130130
  Receipt Date: 20130130
  Transmission Date: 20140127
  Serious: No
  Sender: FDA-Public Use
  Company Number: US-ABBOTT-12P-163-0950539-00

PATIENT
  Age: 49 Year
  Sex: Female
  Weight: 81.72 kg

DRUGS (17)
  1. HUMIRA 40 MG/0.8 ML PEN [Suspect]
     Indication: RHEUMATOID ARTHRITIS
     Route: 058
     Dates: start: 20120517, end: 20120615
  2. BUPROPION [Concomitant]
     Indication: DEPRESSION
  3. TETRASINE [Concomitant]
     Indication: HYPERSENSITIVITY
  4. CYCLOBENZAPRINE [Concomitant]
     Indication: MUSCLE SPASMS
     Dosage: AT BEDTIME, AS REQUIRED
  5. FISH OIL [Concomitant]
     Indication: PRODUCT USED FOR UNKNOWN INDICATION
  6. FERROUS SULFATE [Concomitant]
     Indication: ANAEMIA
  7. FOLIC ACID [Concomitant]
     Indication: PRODUCT USED FOR UNKNOWN INDICATION
  8. HYDROXYZINE [Concomitant]
     Indication: HYPERSENSITIVITY
  9. LEFLUNOMIDE [Concomitant]
     Indication: RHEUMATOID ARTHRITIS
  10. LEVOTHYROXINE [Concomitant]
     Indication: HYPOTHYROIDISM
  11. LIOTHYRONINE [Concomitant]
     Indication: HYPOTHYROIDISM
  12. LISINOPRIL [Concomitant]
     Indication: HYPERTENSION
  13. OMEPRAZOLE [Concomitant]
     Indication: GASTROOESOPHAGEAL REFLUX DISEASE
  14. ONDANSETRON [Concomitant]
     Indication: NAUSEA
  15. PREDNISONE [Concomitant]
     Indication: RHEUMATOID ARTHRITIS
  16. VICODIN [Concomitant]
     Indication: RHEUMATOID ARTHRITIS
     Dosage: 500/325MG, AS REQUIRED
  17. VITAMIN D3 [Concomitant]
     Indication: VITAMIN SUPPLEMENTATION

REACTIONS (11)
  - Pruritus [Recovered/Resolved]
  - Dry skin [Recovered/Resolved]
  - Erythema [Recovered/Resolved]
  - Rash papular [Recovered/Resolved]
  - Hypersensitivity [Recovering/Resolving]
  - Pain [Recovering/Resolving]
  - Pain in extremity [Recovering/Resolving]
  - Musculoskeletal pain [Recovering/Resolving]
  - Dyspnoea [Recovered/Resolved]
  - Dyspnoea [Recovered/Resolved]
  - Paraesthesia [Not Recovered/Not Resolved]
